FAERS Safety Report 9864966 (Version 3)
Quarter: 2015Q3

REPORT INFORMATION
  Report Type: Spontaneous
  Country: US (occurrence: US)
  Receive Date: 20140203
  Receipt Date: 20150817
  Transmission Date: 20151125
  Serious: No
  Sender: FDA-Public Use
  Company Number: US-GILEAD-2014-0093545

PATIENT
  Age: 54 Year
  Sex: Female

DRUGS (1)
  1. LETAIRIS [Suspect]
     Active Substance: AMBRISENTAN
     Indication: PULMONARY ARTERIAL HYPERTENSION
     Route: 065
     Dates: end: 20130312

REACTIONS (5)
  - Abdominal distension [Recovering/Resolving]
  - Insomnia [Recovering/Resolving]
  - Discomfort [Recovering/Resolving]
  - Dry skin [Recovering/Resolving]
  - Fluid retention [Recovering/Resolving]
